FAERS Safety Report 7689066-3 (Version None)
Quarter: 2011Q3

REPORT INFORMATION
  Report Type: 
  Country: None (occurrence: None)
  Receive Date: 20110817
  Receipt Date: 20110816
  Transmission Date: 20111222
  Serious: Yes (Disabling)
  Sender: FDA-Public Use
  Company Number: US-MERCK-1108USA01927

PATIENT
  Sex: Female

DRUGS (3)
  1. BONIVA [Concomitant]
     Route: 065
     Dates: start: 20060101, end: 20090101
  2. FOSAMAX [Suspect]
     Indication: OSTEOPENIA
     Route: 048
     Dates: start: 20040101, end: 20060101
  3. FOSAMAX [Suspect]
     Indication: OSTEOPOROSIS
     Route: 048
     Dates: start: 20040101, end: 20060101

REACTIONS (2)
  - JAW DISORDER [None]
  - OSTEONECROSIS OF JAW [None]
